FAERS Safety Report 10780888 (Version 1)
Quarter: 2015Q1

REPORT INFORMATION
  Report Type: Spontaneous
  Country: US (occurrence: US)
  Receive Date: 20150210
  Receipt Date: 20150210
  Transmission Date: 20150721
  Serious: No
  Sender: FDA-Public Use
  Company Number: US-GLAXOSMITHKLINE-A1065037A

PATIENT

DRUGS (1)
  1. NICODERM CQ [Suspect]
     Active Substance: NICOTINE
     Indication: EX-TOBACCO USER
     Dates: start: 20140305

REACTIONS (8)
  - Application site swelling [Unknown]
  - Application site papules [Unknown]
  - Application site dryness [Unknown]
  - Application site rash [Unknown]
  - Application site erythema [Unknown]
  - Application site exfoliation [Unknown]
  - Application site irritation [Recovering/Resolving]
  - Skin disorder [Unknown]
